FAERS Safety Report 19716292 (Version 1)
Quarter: 2021Q3

REPORT INFORMATION
  Report Type: Spontaneous
  Country: GB (occurrence: GB)
  Receive Date: 20210818
  Receipt Date: 20210818
  Transmission Date: 20211014
  Serious: Yes (Other)
  Sender: FDA-Public Use
  Company Number: GB-TEVA-2021-GB-1943504

PATIENT
  Age: 31 Year
  Sex: Male
  Weight: 81 kg

DRUGS (2)
  1. METHYLPHENIDATE HYDROCHLORIDE. [Suspect]
     Active Substance: METHYLPHENIDATE HYDROCHLORIDE
     Indication: ATTENTION DEFICIT HYPERACTIVITY DISORDER
     Dosage: 60 ? 70 MG / DAY (LONG?RELEASE AND SHORT?RELEASE)
     Route: 048
     Dates: start: 20210514
  2. LOPERAMIDE HYDROCHLORIDE. [Interacting]
     Active Substance: LOPERAMIDE HYDROCHLORIDE
     Indication: IRRITABLE BOWEL SYNDROME
     Dosage: 2 MILLIGRAM DAILY; (ORODISPERSABLE), BEFORE DINNER
     Route: 048
     Dates: start: 20190101

REACTIONS (1)
  - Drug interaction [Not Recovered/Not Resolved]

NARRATIVE: CASE EVENT DATE: 20210515
